FAERS Safety Report 7545617-0 (Version None)
Quarter: 2011Q2

REPORT INFORMATION
  Report Type: 
  Country: None (occurrence: None)
  Receive Date: 20110613
  Receipt Date: 20110613
  Transmission Date: 20111010
  Serious: Yes (Hospitalization)
  Sender: FDA-Public Use
  Company Number: None

PATIENT
  Sex: Male
  Weight: 68.9 kg

DRUGS (2)
  1. CARMUSTINE [Suspect]
     Dosage: 200 MG/M2 X Q8 WEEKS X 3CY
     Dates: start: 20100924, end: 20110114
  2. AVASTIN [Suspect]
     Dosage: 10MG/KG X QOWK
     Dates: start: 20100917, end: 20110401

REACTIONS (10)
  - PERIPHERAL SENSORIMOTOR NEUROPATHY [None]
  - HEMIANOPIA [None]
  - CLONUS [None]
  - PROTEINURIA [None]
  - HEMIPARESIS [None]
  - NAUSEA [None]
  - VOMITING [None]
  - HEADACHE [None]
  - PHOTOPHOBIA [None]
  - HYPERTENSION [None]
